FAERS Safety Report 17855439 (Version 1)
Quarter: 2020Q2

REPORT INFORMATION
  Report Type: Spontaneous
  Country: JP (occurrence: JP)
  Receive Date: 20200603
  Receipt Date: 20200603
  Transmission Date: 20200714
  Serious: Yes (Hospitalization, Other)
  Sender: FDA-Public Use
  Company Number: PHHY2012JP142977

PATIENT
  Age: 68 Year
  Sex: Female

DRUGS (11)
  1. ELTROMBOPAG [Suspect]
     Active Substance: ELTROMBOPAG
     Dosage: 12.5 MG,
     Route: 048
     Dates: start: 20111005, end: 20111211
  2. ELTROMBOPAG [Suspect]
     Active Substance: ELTROMBOPAG
     Dosage: 37.5 MG, QD
     Route: 048
     Dates: start: 20120116, end: 20130214
  3. PREDONINE [Concomitant]
     Active Substance: PREDNISOLONE
     Indication: IMMUNE THROMBOCYTOPENIA
     Dosage: 11 MG,
     Route: 048
     Dates: start: 20110411
  4. ALFAROL [Concomitant]
     Active Substance: ALFACALCIDOL
     Indication: PROPHYLAXIS
     Dosage: 1 UG, QD
     Route: 048
     Dates: start: 20110411
  5. ELTROMBOPAG [Suspect]
     Active Substance: ELTROMBOPAG
     Dosage: 12.5 MG, QOD
     Route: 048
     Dates: start: 20110922, end: 20111004
  6. PARIET [Concomitant]
     Active Substance: RABEPRAZOLE SODIUM
     Indication: PROPHYLAXIS
     Dosage: 10 MG, QD
     Route: 048
     Dates: start: 20110411
  7. BONALON [Concomitant]
     Active Substance: ALENDRONATE SODIUM
     Indication: PROPHYLAXIS
     Dosage: 35 MG, QW
     Route: 048
     Dates: start: 20110411
  8. ELTROMBOPAG [Suspect]
     Active Substance: ELTROMBOPAG
     Indication: IMMUNE THROMBOCYTOPENIA
     Dosage: 12.5 MG,
     Route: 048
     Dates: start: 20110824, end: 20110921
  9. PREDONINE [Concomitant]
     Active Substance: PREDNISOLONE
     Dosage: 5 MG, QD
     Route: 048
  10. ELTROMBOPAG [Suspect]
     Active Substance: ELTROMBOPAG
     Dosage: 25 MG,
     Route: 048
     Dates: start: 20111212, end: 20120115
  11. PREDONINE [Concomitant]
     Active Substance: PREDNISOLONE
     Dosage: 8 MG,
     Route: 048

REACTIONS (2)
  - Hepatic function abnormal [Recovered/Resolved]
  - Hyperthyroidism [Not Recovered/Not Resolved]

NARRATIVE: CASE EVENT DATE: 20110921
